FAERS Safety Report 4967777-8 (Version None)
Quarter: 2006Q2

REPORT INFORMATION
  Report Type: 
  Country: None (occurrence: None)
  Receive Date: 20060410
  Receipt Date: 20051128
  Transmission Date: 20061013
  Serious: Yes (Hospitalization)
  Sender: FDA-Public Use
  Company Number: US-MERCK-0511USA04608

PATIENT
  Age: 51 Year
  Sex: Male
  Weight: 117 kg

DRUGS (4)
  1. VIOXX [Suspect]
     Indication: PAIN
     Route: 048
     Dates: start: 20040301, end: 20040801
  2. VIOXX [Suspect]
     Route: 048
     Dates: start: 20040301, end: 20040801
  3. VIOXX [Suspect]
     Indication: ARTHRITIS
     Route: 048
     Dates: start: 20040301, end: 20040801
  4. VIOXX [Suspect]
     Route: 048
     Dates: start: 20040301, end: 20040801

REACTIONS (3)
  - HIP ARTHROPLASTY [None]
  - MYOCARDIAL INFARCTION [None]
  - NEPHROLITHIASIS [None]
